FAERS Safety Report 23769333 (Version 1)
Quarter: 2024Q2

REPORT INFORMATION
  Report Type: Report from Study
  Country: FR (occurrence: FR)
  Receive Date: 20240422
  Receipt Date: 20240422
  Transmission Date: 20240716
  Serious: Yes (Hospitalization, Other)
  Sender: FDA-Public Use
  Company Number: FR-ALNYLAM PHARMACEUTICALS, INC.-ALN-2024-002204

PATIENT

DRUGS (1)
  1. ONPATTRO [Suspect]
     Active Substance: PATISIRAN SODIUM
     Indication: Product used for unknown indication
     Dosage: UNK
     Route: 065

REACTIONS (10)
  - Cardiac therapeutic procedure [Unknown]
  - Pneumonia [Unknown]
  - Cardiac disorder [Unknown]
  - Cystocele [Unknown]
  - General physical health deterioration [Unknown]
  - Gait disturbance [Unknown]
  - Intentional dose omission [Unknown]
  - Muscular weakness [Unknown]
  - Urodynamics measurement abnormal [Unknown]
  - Malaise [Unknown]

NARRATIVE: CASE EVENT DATE: 20240101
